FAERS Safety Report 11003543 (Version 1)
Quarter: 2015Q2

REPORT INFORMATION
  Report Type: Spontaneous
  Country: TW (occurrence: TW)
  Receive Date: 20150409
  Receipt Date: 20150409
  Transmission Date: 20150821
  Serious: Yes (Hospitalization)
  Sender: FDA-Public Use
  Company Number: TW-ACCORD-029842

PATIENT
  Age: 71 Year
  Sex: Female

DRUGS (14)
  1. ASCORBIC ACID. [Concomitant]
     Active Substance: ASCORBIC ACID
  2. CILOSTAZOL. [Concomitant]
     Active Substance: CILOSTAZOL
  3. BENZBROMARONE [Concomitant]
     Active Substance: BENZBROMARONE
  4. ISOSORBIDE [Concomitant]
     Active Substance: ISOSORBIDE
  5. CALCIUM PANTOTHENATE/CYANOCOBALAMIN/METHIONINE/NICOTINAMIDE/PYRIDOXINE HYDROCHLORIDE/RIBOFLAVIN/THIA [Concomitant]
  6. PROPRANOLOL [Concomitant]
     Active Substance: PROPRANOLOL\PROPRANOLOL HYDROCHLORIDE
  7. VALSARTAN. [Concomitant]
     Active Substance: VALSARTAN
  8. FOLIC ACID. [Concomitant]
     Active Substance: FOLIC ACID
  9. DOXAZOSIN [Concomitant]
     Active Substance: DOXAZOSIN\DOXAZOSIN MESYLATE
  10. NIFEDIPINE. [Concomitant]
     Active Substance: NIFEDIPINE
  11. CLOPIDOGREL [Suspect]
     Active Substance: CLOPIDOGREL BISULFATE
     Indication: CORONARY ARTERY DISEASE
  12. NICORANDIL [Concomitant]
     Active Substance: NICORANDIL
  13. ALFACALCIDOL [Concomitant]
     Active Substance: ALFACALCIDOL
  14. ACETYLSALICYLIC ACID [Suspect]
     Active Substance: ASPIRIN
     Indication: CORONARY ARTERY DISEASE

REACTIONS (5)
  - Asthenia [Unknown]
  - Cough [Unknown]
  - Rhinorrhoea [Unknown]
  - Pyrexia [Recovered/Resolved]
  - Pancytopenia [Recovered/Resolved]
